FAERS Safety Report 5777327-4 (Version None)
Quarter: 2008Q2

REPORT INFORMATION
  Report Type: 
  Country: None (occurrence: None)
  Receive Date: 20080618
  Receipt Date: 20080610
  Transmission Date: 20081010
  Serious: Yes (Other)
  Sender: FDA-Public Use
  Company Number: PHHY2008GB10841

PATIENT
  Sex: Female

DRUGS (2)
  1. GLIVEC [Suspect]
     Indication: CHRONIC MYELOID LEUKAEMIA
     Dosage: 300 MG DAILY
     Dates: start: 20071126, end: 20080317
  2. GLIVEC [Suspect]
     Dosage: 400 MG DAILY

REACTIONS (2)
  - ANAEMIA [None]
  - DEMENTIA [None]
